FAERS Safety Report 13858424 (Version 1)
Quarter: 2017Q3

REPORT INFORMATION
  Report Type: Spontaneous
  Country: CA (occurrence: CA)
  Receive Date: 20170811
  Receipt Date: 20170811
  Transmission Date: 20171127
  Serious: Yes (Death)
  Sender: FDA-Public Use
  Company Number: CA-ASTRAZENECA-2017SE81094

PATIENT
  Age: 63 Year
  Sex: Male

DRUGS (8)
  1. LIPITOR [Concomitant]
     Active Substance: ATORVASTATIN CALCIUM
  2. NOVOLIN [Concomitant]
     Active Substance: INSULIN HUMAN
     Route: 030
  3. NOVORAPID [Concomitant]
     Active Substance: INSULIN ASPART
     Route: 058
  4. METFORMIN [Concomitant]
     Active Substance: METFORMIN HYDROCHLORIDE
  5. COVERSYL PLUS HD [Concomitant]
     Active Substance: INDAPAMIDE\PERINDOPRIL ERBUMINE
  6. ACETYLSALICYLIC ACID [Concomitant]
     Active Substance: ASPIRIN
  7. FORXIGA [Suspect]
     Active Substance: DAPAGLIFLOZIN
     Indication: TYPE 2 DIABETES MELLITUS
     Route: 048
  8. ATIVAN [Concomitant]
     Active Substance: LORAZEPAM

REACTIONS (1)
  - Sudden death [Fatal]
